FAERS Safety Report 8476306-6 (Version None)
Quarter: 2012Q2

REPORT INFORMATION
  Report Type: 
  Country: None (occurrence: None)
  Receive Date: 20120620
  Receipt Date: 20120612
  Transmission Date: 20120825
  Serious: Yes (Life-Threatening, Hospitalization)
  Sender: FDA-Public Use
  Company Number: 2010SP039100

PATIENT
  Age: 48 Year
  Sex: Male

DRUGS (17)
  1. SUFENTA PRESERVATIVE FREE [Suspect]
     Indication: GAIT DISTURBANCE
     Dosage: 40 MCG;ONCE;IV, 10 MCG;ONCE;IV
     Route: 042
  2. DIPRIVAN [Suspect]
     Indication: GENERAL ANAESTHESIA
     Dosage: 200 MG;ONCE;IV, 100 MG;ONCE;IV, 100 MG;ONCE;IV
     Route: 042
     Dates: start: 20100617, end: 20100617
  3. DIPRIVAN [Suspect]
     Indication: GENERAL ANAESTHESIA
     Dosage: 200 MG;ONCE;IV, 100 MG;ONCE;IV, 100 MG;ONCE;IV
     Route: 042
     Dates: start: 20100617, end: 20100617
  4. DIPRIVAN [Suspect]
     Indication: GENERAL ANAESTHESIA
     Dosage: 200 MG;ONCE;IV, 100 MG;ONCE;IV, 100 MG;ONCE;IV
     Route: 042
     Dates: start: 20100617, end: 20100617
  5. ACETAMINOPHEN [Concomitant]
  6. ROCURONIUM BROMIDE [Suspect]
     Indication: GENERAL ANAESTHESIA
     Dosage: 50 MG;ONCE;IV
     Route: 042
     Dates: start: 20100617, end: 20100617
  7. ROPIVACAINE HYDROCHLORIDE [Suspect]
     Indication: NEUROMUSCULAR BLOCKADE
     Dosage: 20 MG;ONCE;IV
     Route: 042
     Dates: start: 20100617, end: 20100617
  8. CLONAZEPAM [Concomitant]
  9. ATARAX [Suspect]
     Indication: ANAESTHETIC PREMEDICATION
     Dosage: 50 MG;ONCE;PO
     Route: 048
     Dates: start: 20100617, end: 20100617
  10. OLMESARTAN MEDOXOMIL [Concomitant]
  11. LYRICA [Suspect]
     Indication: ANAESTHETIC PREMEDICATION
     Dosage: 150 MG;ONCE;PO
     Route: 048
     Dates: start: 20100617, end: 20100617
  12. OXYCONTIN [Concomitant]
  13. CYMBALTA [Concomitant]
  14. BECLOMETASONE, FORMOTEROL (INNOVAIR) [Concomitant]
  15. DESLORATADINE [Concomitant]
  16. NEXIUM [Concomitant]
  17. GAVISCON [Concomitant]

REACTIONS (10)
  - ANAPHYLACTIC SHOCK [None]
  - BRONCHOSPASM [None]
  - HYPERCAPNIA [None]
  - RESPIRATORY ACIDOSIS [None]
  - CARDIAC ARREST [None]
  - HYPERHIDROSIS [None]
  - CYANOSIS [None]
  - HYPOVOLAEMIA [None]
  - HYPOTENSION [None]
  - BRADYCARDIA [None]
